FAERS Safety Report 23699502 (Version 3)
Quarter: 2024Q2

REPORT INFORMATION
  Report Type: Report from Study
  Country: CA (occurrence: CA)
  Receive Date: 20240402
  Receipt Date: 20240524
  Transmission Date: 20240716
  Serious: Yes (Death, Life-Threatening, Hospitalization)
  Sender: FDA-Public Use
  Company Number: CA-BoehringerIngelheim-2024-BI-019509

PATIENT
  Age: 69 Year
  Sex: Female

DRUGS (1)
  1. OFEV [Suspect]
     Active Substance: NINTEDANIB
     Indication: Idiopathic pulmonary fibrosis
     Route: 048
     Dates: start: 20240328, end: 20240413

REACTIONS (4)
  - Respiratory failure [Fatal]
  - Idiopathic pulmonary fibrosis [Fatal]
  - Pulmonary hypertension [Fatal]
  - Cardiac arrest [Not Recovered/Not Resolved]
